FAERS Safety Report 16237159 (Version 5)
Quarter: 2019Q2

REPORT INFORMATION
  Report Type: Report from Study
  Country: None (occurrence: CA)
  Receive Date: 20190425
  Receipt Date: 20190619
  Transmission Date: 20190711
  Serious: Yes (Hospitalization, Other)
  Sender: FDA-Public Use
  Company Number: CA-ABBVIE-19K-028-2704816-00

PATIENT
  Sex: Female
  Weight: 100 kg

DRUGS (4)
  1. HUMIRA [Suspect]
     Active Substance: ADALIMUMAB
     Route: 058
     Dates: start: 20190423
  2. METOPROLOL. [Suspect]
     Active Substance: METOPROLOL
     Indication: PRODUCT USED FOR UNKNOWN INDICATION
     Route: 065
  3. HUMIRA [Suspect]
     Active Substance: ADALIMUMAB
     Indication: CROHN^S DISEASE
     Route: 058
     Dates: start: 20120802, end: 2019
  4. COVERSYL [Concomitant]
     Active Substance: PERINDOPRIL
     Indication: PRODUCT USED FOR UNKNOWN INDICATION

REACTIONS (22)
  - Lower respiratory tract infection [Unknown]
  - Myalgia [Unknown]
  - Influenza [Unknown]
  - Asthma [Unknown]
  - Cough [Unknown]
  - Chronic obstructive pulmonary disease [Unknown]
  - Cardiac disorder [Unknown]
  - Complex regional pain syndrome [Unknown]
  - Discomfort [Not Recovered/Not Resolved]
  - Myocardial ischaemia [Recovered/Resolved]
  - Pneumonia [Recovered/Resolved]
  - Myocardial infarction [Unknown]
  - Ejection fraction decreased [Unknown]
  - Respiratory syncytial virus infection [Unknown]
  - Malaise [Unknown]
  - Cardiac disorder [Recovered/Resolved]
  - Drug level decreased [Recovering/Resolving]
  - Influenza [Recovered/Resolved]
  - Oxygen saturation abnormal [Unknown]
  - Troponin increased [Unknown]
  - Drug intolerance [Unknown]
  - Hypertension [Unknown]

NARRATIVE: CASE EVENT DATE: 2019
